FAERS Safety Report 10062870 (Version 1)
Quarter: 2014Q1

REPORT INFORMATION
  Report Type: Spontaneous
  Country: US (occurrence: None)
  Receive Date: 20140328
  Receipt Date: 20140328
  Transmission Date: 20141002
  Serious: No
  Sender: FDA-Public Use
  Company Number: CABO-14004038

PATIENT
  Age: 46 Year
  Sex: Male

DRUGS (2)
  1. COMETRIQ (CABOZANTINIB) CAPSULE [Suspect]
     Indication: THYROID CANCER
     Route: 048
     Dates: start: 20140201
  2. SYNTHROID(LEVOTHYROXINE SODIUM) [Concomitant]

REACTIONS (1)
  - Limb discomfort [None]
